FAERS Safety Report 18121663 (Version 1)
Quarter: 2020Q3

REPORT INFORMATION
  Report Type: Other
  Country: CN (occurrence: CN)
  Receive Date: 20200807
  Receipt Date: 20200807
  Transmission Date: 20201103
  Serious: Yes (Other)
  Sender: FDA-Public Use
  Company Number: CN-ROCHE-2651496

PATIENT
  Age: 34 Year
  Sex: Female

DRUGS (1)
  1. OSELTAMIVIR [Suspect]
     Active Substance: OSELTAMIVIR
     Indication: PYREXIA
     Route: 048

REACTIONS (8)
  - Localised oedema [Unknown]
  - Maternal exposure during pregnancy [Unknown]
  - Pleural effusion [Unknown]
  - Premature separation of placenta [Unknown]
  - COVID-19 pneumonia [Unknown]
  - Placental infarction [Unknown]
  - Pulmonary hypertension [Unknown]
  - Pericardial effusion [Unknown]
